FAERS Safety Report 5271313-9 (Version None)
Quarter: 2007Q1

REPORT INFORMATION
  Report Type: 
  Country: None (occurrence: None)
  Receive Date: 20070316
  Receipt Date: 20070309
  Transmission Date: 20070707
  Serious: Yes (Hospitalization, Other)
  Sender: FDA-Public Use
  Company Number: 056-C5013-06080283

PATIENT
  Age: 64 Year
  Sex: Male
  Weight: 77 kg

DRUGS (7)
  1. CC-5013 (LENALIDOMIDE) (CAPSULES) [Suspect]
     Indication: MULTIPLE MYELOMA
     Dosage: 25 MG, 1 IN 1 D, 15 MG, 1 IN 1 D
     Dates: start: 20060626, end: 20060712
  2. CC-5013 (LENALIDOMIDE) (CAPSULES) [Suspect]
     Indication: MULTIPLE MYELOMA
     Dosage: 25 MG, 1 IN 1 D, 15 MG, 1 IN 1 D
     Dates: start: 20060724
  3. DEXAMETHASONE TAB [Suspect]
     Indication: MULTIPLE MYELOMA
     Dosage: 40 MG, 1 IN 1 D, PER ORAL
     Route: 048
  4. LYTOS (CLODRONATE DISODIUM) [Concomitant]
  5. MOPRAL (OMEPRAZOLE) [Concomitant]
  6. NEURONTIN [Concomitant]
  7. IMMUNOGLOBULIN  (IMMUNOGLOBULIN) [Concomitant]

REACTIONS (4)
  - DEHYDRATION [None]
  - FEBRILE BONE MARROW APLASIA [None]
  - GENERAL PHYSICAL HEALTH DETERIORATION [None]
  - RENAL FAILURE ACUTE [None]
